FAERS Safety Report 9366177 (Version 4)
Quarter: 2017Q1

REPORT INFORMATION
  Report Type: Spontaneous
  Country: GB (occurrence: GB)
  Receive Date: 20130625
  Receipt Date: 20170223
  Transmission Date: 20170429
  Serious: Yes (Death, Hospitalization)
  Sender: FDA-Public Use
  Company Number: GB-AMGEN-GBRSP2013044639

PATIENT
  Age: 77 Year
  Sex: Male

DRUGS (2)
  1. CINACALCET [Concomitant]
     Active Substance: CINACALCET
     Dosage: 60 MG, QD
  2. PROLIA [Suspect]
     Active Substance: DENOSUMAB
     Indication: OSTEOPOROSIS
     Dosage: 60 MG, UNK
     Route: 058

REACTIONS (3)
  - Electrocardiogram QT prolonged [Unknown]
  - Death [Fatal]
  - Hypocalcaemia [Recovered/Resolved]
